APPROVED DRUG PRODUCT: BREXPIPRAZOLE
Active Ingredient: BREXPIPRAZOLE
Strength: 0.5MG
Dosage Form/Route: TABLET;ORAL
Application: A213570 | Product #002
Applicant: SANDOZ INC
Approved: Sep 26, 2022 | RLD: No | RS: No | Type: DISCN